FAERS Safety Report 13379939 (Version 1)
Quarter: 2017Q1

REPORT INFORMATION
  Report Type: Spontaneous
  Country: US (occurrence: US)
  Receive Date: 20170328
  Receipt Date: 20170328
  Transmission Date: 20170429
  Serious: Yes (Hospitalization)
  Sender: FDA-Public Use
  Company Number: US-ELI_LILLY_AND_COMPANY-US201608003897

PATIENT
  Weight: 62.6 kg

DRUGS (7)
  1. VALIUM [Concomitant]
     Active Substance: DIAZEPAM
     Indication: PRODUCT USED FOR UNKNOWN INDICATION
     Dosage: 10 MG, TID
     Route: 065
  2. HUMALOG [Concomitant]
     Active Substance: INSULIN LISPRO
     Indication: PRODUCT USED FOR UNKNOWN INDICATION
     Dosage: UNK, OTHER
     Route: 058
  3. CYMBALTA [Suspect]
     Active Substance: DULOXETINE HYDROCHLORIDE
     Indication: MAJOR DEPRESSION
     Dosage: UNK, UNKNOWN
     Route: 065
     Dates: start: 20060604
  4. TRAMADOL. [Concomitant]
     Active Substance: TRAMADOL
     Indication: PRODUCT USED FOR UNKNOWN INDICATION
     Dosage: 50 MG, PRN
     Route: 065
  5. LUNESTA [Concomitant]
     Active Substance: ESZOPICLONE
     Indication: PRODUCT USED FOR UNKNOWN INDICATION
     Dosage: 3 MG, EACH EVENING
     Route: 065
  6. ATIVAN [Concomitant]
     Active Substance: LORAZEPAM
     Indication: PRODUCT USED FOR UNKNOWN INDICATION
     Dosage: 2 MG, BID
     Route: 065
  7. ALTACE [Concomitant]
     Active Substance: RAMIPRIL
     Indication: PRODUCT USED FOR UNKNOWN INDICATION
     Dosage: 2 MG, QD
     Route: 065

REACTIONS (23)
  - Paraesthesia [Unknown]
  - Irritability [Unknown]
  - Confusional state [Unknown]
  - Suicidal ideation [Unknown]
  - Nausea [Unknown]
  - Hypomania [Unknown]
  - Drug withdrawal syndrome [Unknown]
  - Hyperhidrosis [Unknown]
  - Headache [Unknown]
  - Vitreous haemorrhage [Not Recovered/Not Resolved]
  - Anxiety [Unknown]
  - Lethargy [Unknown]
  - Diabetic retinopathy [Not Recovered/Not Resolved]
  - Fatigue [Unknown]
  - Vertigo [Unknown]
  - Dizziness [Unknown]
  - Intentional product misuse [Unknown]
  - Diarrhoea [Unknown]
  - Agitation [Unknown]
  - Affect lability [Unknown]
  - Sensory disturbance [Unknown]
  - Dysphoria [Unknown]
  - Insomnia [Unknown]
